FAERS Safety Report 9269836 (Version 2)
Quarter: 2013Q2

REPORT INFORMATION
  Report Type: Spontaneous
  Country: US (occurrence: US)
  Receive Date: 20130503
  Receipt Date: 20130530
  Transmission Date: 20140414
  Serious: Yes (Hospitalization, Other)
  Sender: FDA-Public Use
  Company Number: US-009507513-1305USA000071

PATIENT
  Age: 75 Year
  Sex: Male
  Weight: 75 kg

DRUGS (8)
  1. SYLATRON [Suspect]
     Indication: MALIGNANT MELANOMA
     Dosage: 2 MICROGRAM PER KILOGRAM, QW
     Route: 058
     Dates: start: 20121220, end: 20130306
  2. YERVOY [Suspect]
     Indication: MALIGNANT MELANOMA
     Dosage: 3 MG/KG, Q3W
     Route: 042
     Dates: start: 20121220, end: 20130220
  3. PLAVIX [Concomitant]
     Dosage: 75 MG, QD
     Route: 048
  4. VERAPAMIL [Concomitant]
     Dosage: 240 MG, QD
     Route: 048
  5. METOPROLOL [Concomitant]
     Dosage: 25 MG, QD
     Route: 048
  6. CRESTOR [Concomitant]
     Dosage: 5 MG, QD
     Route: 048
  7. KRILL OIL [Concomitant]
     Dosage: 300 MG, QD
     Route: 048
  8. OCUVITE [Concomitant]
     Dosage: 2 DF, QD
     Route: 047

REACTIONS (2)
  - Acute myocardial infarction [Unknown]
  - Pneumonia [Unknown]
